FAERS Safety Report 6543776-X (Version None)
Quarter: 2010Q1

REPORT INFORMATION
  Report Type: 
  Country: None (occurrence: None)
  Receive Date: 20100120
  Receipt Date: 20090312
  Transmission Date: 20100710
  Serious: No
  Sender: FDA-Public Use
  Company Number: US-BRISTOL-MYERS SQUIBB COMPANY-14531701

PATIENT
  Age: 7 Decade
  Sex: Male

DRUGS (5)
  1. ERBITUX [Suspect]
     Indication: NON-SMALL CELL LUNG CANCER
     Dates: start: 20080701, end: 20081202
  2. CISPLATIN [Suspect]
     Dates: start: 20080701
  3. NAVELBINE [Suspect]
     Dates: start: 20080701
  4. IRINOTECAN HCL [Concomitant]
  5. AVASTIN [Concomitant]

REACTIONS (1)
  - SCAB [None]
